FAERS Safety Report 15363389 (Version 4)
Quarter: 2019Q1

REPORT INFORMATION
  Report Type: Report from Study
  Country: US (occurrence: US)
  Receive Date: 20180907
  Receipt Date: 20190308
  Transmission Date: 20190417
  Serious: Yes (Hospitalization)
  Sender: FDA-Public Use
  Company Number: US-ACTELION-A-NJ2018-174587

PATIENT
  Age: 53 Year
  Sex: Female

DRUGS (1)
  1. OPSUMIT [Suspect]
     Active Substance: MACITENTAN
     Indication: PULMONARY ARTERIAL HYPERTENSION
     Dosage: 10 MG, QD
     Route: 048
     Dates: start: 20180317

REACTIONS (13)
  - Cardiac failure congestive [Unknown]
  - Pneumonia [Unknown]
  - Sneezing [Unknown]
  - Abdominal distension [Unknown]
  - Abdominal discomfort [Unknown]
  - Enterocolitis [Unknown]
  - Atrial fibrillation [Unknown]
  - Ascites [Unknown]
  - Productive cough [Unknown]
  - Diarrhoea [Unknown]
  - Condition aggravated [Unknown]
  - Dyspnoea [Recovering/Resolving]
  - Oropharyngeal pain [Unknown]

NARRATIVE: CASE EVENT DATE: 2018
